FAERS Safety Report 4597892-2 (Version None)
Quarter: 2005Q1

REPORT INFORMATION
  Report Type: 
  Country: None (occurrence: None)
  Receive Date: 20050125
  Receipt Date: 20040913
  Transmission Date: 20050727
  Serious: No
  Sender: FDA-Public Use
  Company Number: USA040978064

PATIENT
  Age: 85 Year
  Sex: Female
  Weight: 59 kg

DRUGS (15)
  1. FORTEO [Suspect]
     Indication: OSTEOPOROSIS
     Dosage: 20 UG/1 DAY
     Dates: start: 20040903
  2. CITRACAL (CALCIUM CITRATE) [Concomitant]
  3. VITAMIN D [Concomitant]
  4. TYLENOL ARTHRITIS FORMULA (PARACETAMOL) [Concomitant]
  5. LASIX [Concomitant]
  6. POTASSIUM CHLORIDE [Concomitant]
  7. DIGITEK (DIGOXIN STREULI) [Concomitant]
  8. LISINOPRIL [Concomitant]
  9. PROTONIX [Concomitant]
  10. OCUVITE [Concomitant]
  11. WARFARIN SODIUM [Concomitant]
  12. MAGNESIUM (MAGNESIUM ASPARTATE) [Concomitant]
  13. VITAMIN B COMPLEX CAP [Concomitant]
  14. DIABETA [Concomitant]
  15. DARVOCET-N 100 [Concomitant]

REACTIONS (6)
  - ARTHRALGIA [None]
  - ASTHENIA [None]
  - DYSPNOEA [None]
  - FATIGUE [None]
  - JOINT STIFFNESS [None]
  - MUSCULOSKELETAL STIFFNESS [None]
